FAERS Safety Report 5712487-2 (Version None)
Quarter: 2008Q2

REPORT INFORMATION
  Report Type: 
  Country: None (occurrence: None)
  Receive Date: 20080422
  Receipt Date: 20080411
  Transmission Date: 20081010
  Serious: Yes (Hospitalization, Other)
  Sender: FDA-Public Use
  Company Number: CA-GENENTECH-259265

PATIENT
  Sex: Female

DRUGS (2)
  1. RAPTIVA [Suspect]
     Indication: PSORIASIS
     Dosage: UNK, 1/WEEK
     Route: 058
     Dates: start: 20070109, end: 20080101
  2. RAPTIVA [Suspect]
     Dates: start: 20080301

REACTIONS (3)
  - ESCHERICHIA URINARY TRACT INFECTION [None]
  - PSORIASIS [None]
  - RENAL FAILURE [None]
